FAERS Safety Report 5929363-2 (Version None)
Quarter: 2008Q4

REPORT INFORMATION
  Report Type: 
  Country: None (occurrence: None)
  Receive Date: 20081023
  Receipt Date: 20081023
  Transmission Date: 20090506
  Serious: Yes (Other)
  Sender: FDA-Public Use
  Company Number: None

PATIENT
  Age: 57 Year
  Sex: Female
  Weight: 81.6475 kg

DRUGS (1)
  1. SUCRALFATE [Suspect]
     Indication: ULCER
     Dosage: 1 TAB 3X BEFORE MEALS PO
     Route: 048
     Dates: start: 20080914, end: 20081022

REACTIONS (3)
  - CHOKING [None]
  - PRODUCT QUALITY ISSUE [None]
  - RETCHING [None]
